FAERS Safety Report 17802119 (Version 1)
Quarter: 2020Q2

REPORT INFORMATION
  Report Type: Spontaneous
  Country: US (occurrence: US)
  Receive Date: 20200518
  Receipt Date: 20200518
  Transmission Date: 20200714
  Serious: Yes (Hospitalization)
  Sender: FDA-Public Use
  Company Number: None

PATIENT
  Age: 60 Year
  Sex: Male
  Weight: 92.3 kg

DRUGS (2)
  1. REGORAFENIB. [Suspect]
     Active Substance: REGORAFENIB
  2. NIVOLUMAB [Suspect]
     Active Substance: NIVOLUMAB

REACTIONS (3)
  - Colitis [None]
  - Clinical trial participant [None]
  - Diarrhoea [None]

NARRATIVE: CASE EVENT DATE: 20200516
